FAERS Safety Report 25206953 (Version 1)
Quarter: 2025Q2

REPORT INFORMATION
  Report Type: Spontaneous
  Country: DE (occurrence: DE)
  Receive Date: 20250417
  Receipt Date: 20250417
  Transmission Date: 20250717
  Serious: No
  Sender: TEVA
  Company Number: DE-TEVA-VS-3307821

PATIENT
  Age: 73 Year
  Sex: Female

DRUGS (4)
  1. ROSUVASTATIN [Suspect]
     Active Substance: ROSUVASTATIN
     Indication: Blood cholesterol increased
     Dosage: ROSUVASTATIN-RATIOPHARM, 5 MG FILM-COATED TABLETS FOR 14 DAYS AT A DOSE OF 0-0-1
     Route: 065
  2. MAGNESIUM [Concomitant]
     Active Substance: MAGNESIUM
     Indication: Product used for unknown indication
     Dosage: DAILY
  3. LEVOTHYROXINE SODIUM [Concomitant]
     Active Substance: LEVOTHYROXINE SODIUM
     Indication: Product used for unknown indication
  4. Calcium Sandoz D Osteo [Concomitant]
     Indication: Product used for unknown indication
     Dosage: 500MG - 1X BT DAILY

REACTIONS (10)
  - Asthenopia [Not Recovered/Not Resolved]
  - Purulent discharge [Unknown]
  - Myoclonus [Unknown]
  - Paraesthesia [Recovered/Resolved]
  - Muscle tightness [Unknown]
  - Muscle spasms [Recovered/Resolved]
  - Eyelid ptosis [Recovering/Resolving]
  - Blepharitis [Unknown]
  - Arthralgia [Unknown]
  - Abdominal pain upper [Unknown]

NARRATIVE: CASE EVENT DATE: 20250303
